FAERS Safety Report 6432698-0 (Version None)
Quarter: 2009Q4

REPORT INFORMATION
  Report Type: 
  Country: None (occurrence: None)
  Receive Date: 20091105
  Receipt Date: 20091028
  Transmission Date: 20100525
  Serious: Yes (Other)
  Sender: FDA-Public Use
  Company Number: 2009011973

PATIENT
  Sex: Female

DRUGS (1)
  1. PROVIGIL [Suspect]
     Indication: NARCOLEPSY
     Dosage: ORAL
     Route: 048

REACTIONS (1)
  - CARDIAC FAILURE CONGESTIVE [None]
